FAERS Safety Report 20697248 (Version 2)
Quarter: 2022Q2

REPORT INFORMATION
  Report Type: Spontaneous
  Country: NZ (occurrence: NZ)
  Receive Date: 20220411
  Receipt Date: 20220517
  Transmission Date: 20220721
  Serious: Yes (Hospitalization)
  Sender: FDA-Public Use
  Company Number: NZ-MYLANLABS-2022M1026033

PATIENT
  Age: 77 Year
  Sex: Female
  Weight: 54.6 kg

DRUGS (15)
  1. CLOZARIL [Suspect]
     Active Substance: CLOZAPINE
     Indication: Schizophrenia
     Dosage: 25 MILLIGRAM, QD, AT NIGHT AT 7.30 PM
     Route: 048
     Dates: start: 20210217
  2. CLOZARIL [Suspect]
     Active Substance: CLOZAPINE
     Indication: Parkinson^s disease psychosis
  3. ONREX [Concomitant]
     Indication: Constipation prophylaxis
     Dosage: 8 MILLIGRAM, NOCTE AT 7.30 PM
     Route: 048
  4. BENSERAZIDE HYDROCHLORIDE\LEVODOPA [Concomitant]
     Active Substance: BENSERAZIDE HYDROCHLORIDE\LEVODOPA
     Dosage: 6 DOSAGE FORM, QD, 6 CAPSULES DAILY (2 CAP AT 7 AM, 1 AT 9 AM, NOON 2.30 AND 5 PM)
  5. BENSERAZIDE HYDROCHLORIDE\LEVODOPA [Concomitant]
     Active Substance: BENSERAZIDE HYDROCHLORIDE\LEVODOPA
     Dosage: 6 DOSAGE FORM, QD, 6 CAPSULES DAILY (1 CAP AT 9 AM, NOON 2.30 AND 5 PM, 2 AT 7.30PM)
  6. ENTACAPONE [Concomitant]
     Active Substance: ENTACAPONE
     Dosage: 200 MILLIGRAM, TID AT 7 AM AND 5 PM
     Route: 048
  7. ASPIRIN [Concomitant]
     Active Substance: ASPIRIN
     Indication: Constipation prophylaxis
     Dosage: 100 MILLIGRAM MANE AT 8 AM
     Route: 048
  8. BENSERAZIDE HYDROCHLORIDE\LEVODOPA [Concomitant]
     Active Substance: BENSERAZIDE HYDROCHLORIDE\LEVODOPA
     Dosage: 1 DOSAGE FORM, BID (ONE CAPSULE BD AT 9AM AND 7:30PM )
  9. VITAMIN D3 [Concomitant]
     Active Substance: CHOLECALCIFEROL
     Dosage: 1.25 MILLIGRAM, MONTHLY
     Route: 048
  10. POLYETHYLENE GLYCOL 3350\POTASSIUM CHLORIDE\SODIUM BICARBONATE\SODIUM [Concomitant]
     Active Substance: POLYETHYLENE GLYCOL 3350\POTASSIUM CHLORIDE\SODIUM BICARBONATE\SODIUM CHLORIDE
     Dosage: UNK, QD (ONE SACHET DISSOLVED IN WATER (125ML) DAILY AT 7:30PM)
  11. RIVASTIGMINE [Concomitant]
     Active Substance: RIVASTIGMINE
     Dosage: UNK, QD (9.5 MG/24 HOURS PATCH, APPLY ONE PATCH EACH DAY AT 8AM ON SKIN OF BACK OR UPPER ARMS)
  12. VENLAFAXINE HYDROCHLORIDE [Concomitant]
     Active Substance: VENLAFAXINE HYDROCHLORIDE
     Dosage: UNK, QD (ONE X 150MG CAPSULE (IN ADDITION TO 3X 37.5MG) ONCE DAILY AT 8AM
  13. VENLAFAXINE HYDROCHLORIDE [Concomitant]
     Active Substance: VENLAFAXINE HYDROCHLORIDE
     Dosage: UNK, QD (THREE X 37.5MG CAPSULES (IN ADDITION TO 1X 150MG CAPSULE) DAILY AT 8AM )
  14. ATIVAN [Concomitant]
     Active Substance: LORAZEPAM
     Dosage: 1 MILLIGRAM, TID, 1 MG PO TDS AT LAM, NOON AND 5PM
     Route: 048
  15. RAMIPEX [Concomitant]
     Dosage: 500 MICROGRAM, QD, 500MCG PO DAILY AT 5PM
     Route: 048

REACTIONS (5)
  - Arthralgia [Recovered/Resolved]
  - On and off phenomenon [Recovered/Resolved]
  - Parkinson^s disease [Recovered/Resolved]
  - Dementia [Unknown]
  - Lymphocyte count decreased [Not Recovered/Not Resolved]

NARRATIVE: CASE EVENT DATE: 20220308
